FAERS Safety Report 19692443 (Version 1)
Quarter: 2021Q3

REPORT INFORMATION
  Report Type: Spontaneous
  Country: PT (occurrence: PT)
  Receive Date: 20210812
  Receipt Date: 20210812
  Transmission Date: 20211014
  Serious: Yes (Life-Threatening, Hospitalization)
  Sender: FDA-Public Use
  Company Number: PT-TEVA-2021-PT-1940013

PATIENT
  Age: 61 Year
  Sex: Male

DRUGS (3)
  1. ETOPOSIDE. [Suspect]
     Active Substance: ETOPOSIDE
     Indication: NEUROENDOCRINE CARCINOMA OF THE SKIN
     Dosage: ON DAY 1?3 IN A 3?WEEK CYCLE
     Route: 065
  2. AVELUMAB [Suspect]
     Active Substance: AVELUMAB
     Indication: NEUROENDOCRINE CARCINOMA OF THE SKIN
     Route: 065
     Dates: start: 201708
  3. CISPLATIN. [Suspect]
     Active Substance: CISPLATIN
     Indication: NEUROENDOCRINE CARCINOMA OF THE SKIN
     Dosage: ON DAY 1 IN 3?WEEK CYCLE
     Route: 065

REACTIONS (5)
  - Neutropenia [Recovering/Resolving]
  - Bacteraemia [Unknown]
  - Respiratory failure [Unknown]
  - Off label use [Unknown]
  - Pneumonia pneumococcal [Unknown]
